FAERS Safety Report 9778997 (Version 2)
Quarter: 2013Q4

REPORT INFORMATION
  Report Type: Spontaneous
  Country: US (occurrence: US)
  Receive Date: 20131223
  Receipt Date: 20131223
  Transmission Date: 20140711
  Serious: No
  Sender: FDA-Public Use
  Company Number: US-GILEAD-2011-0046929

PATIENT
  Age: 79 Year
  Sex: Male

DRUGS (3)
  1. LETAIRIS [Suspect]
     Indication: PULMONARY HYPERTENSION
     Dosage: 5 MG, UNK
     Route: 048
     Dates: start: 20111104
  2. LETAIRIS [Suspect]
     Indication: INTERSTITIAL LUNG DISEASE
  3. LETAIRIS [Suspect]
     Indication: RHEUMATOID ARTHRITIS

REACTIONS (2)
  - Malaise [Unknown]
  - Abdominal discomfort [Unknown]
